FAERS Safety Report 18060037 (Version 1)
Quarter: 2020Q3

REPORT INFORMATION
  Report Type: Spontaneous
  Country: US (occurrence: US)
  Receive Date: 20200723
  Receipt Date: 20200723
  Transmission Date: 20201103
  Serious: No
  Sender: FDA-Public Use
  Company Number: US-RECKITT BENCKISER HEALTHCARE INT LIMITED-RB-93006-2019

PATIENT
  Age: 60 Year
  Sex: Female

DRUGS (1)
  1. MUCINEX DM MAXIMUM STRENGTH [Suspect]
     Active Substance: DEXTROMETHORPHAN HYDROBROMIDE\GUAIFENESIN
     Indication: INFLUENZA
     Dosage: 2400 MILLIGRAM, SINGLE
     Route: 065
     Dates: start: 20191115

REACTIONS (1)
  - Overdose [Unknown]

NARRATIVE: CASE EVENT DATE: 20191115
